FAERS Safety Report 23549252 (Version 3)
Quarter: 2024Q1

REPORT INFORMATION
  Report Type: Spontaneous
  Country: US (occurrence: US)
  Receive Date: 20240221
  Receipt Date: 20240319
  Transmission Date: 20240410
  Serious: No
  Sender: FDA-Public Use
  Company Number: US-PFIZER INC-202400044473

PATIENT
  Age: 85 Year
  Sex: Male
  Weight: 84.37 kg

DRUGS (1)
  1. VYNDAMAX [Suspect]
     Active Substance: TAFAMIDIS
     Indication: Amyloidosis
     Dosage: 61MG CAPSULE ONE DAY BY MOUTH
     Route: 048

REACTIONS (3)
  - Fluid retention [Unknown]
  - Sleep disorder [Recovering/Resolving]
  - Cardiac disorder [Not Recovered/Not Resolved]
